FAERS Safety Report 9585467 (Version 1)
Quarter: 2013Q4

REPORT INFORMATION
  Report Type: Spontaneous
  Country: US (occurrence: US)
  Receive Date: 20131003
  Receipt Date: 20131003
  Transmission Date: 20140711
  Serious: No
  Sender: FDA-Public Use
  Company Number: US-B.I. PHARMACEUTICALS,INC./RIDGEFIELD-2013-BI-29996BP

PATIENT
  Sex: Male

DRUGS (4)
  1. TRADJENTA [Suspect]
     Indication: TYPE 2 DIABETES MELLITUS
     Dosage: 5 MG
     Route: 048
     Dates: start: 201309, end: 201309
  2. BLOOD PRESSURE MEDICATION [Concomitant]
  3. METFORMIN [Concomitant]
  4. DIURETIC [Concomitant]

REACTIONS (1)
  - Oedema peripheral [Unknown]
